FAERS Safety Report 7506133-5 (Version None)
Quarter: 2011Q2

REPORT INFORMATION
  Report Type: 
  Country: None (occurrence: None)
  Receive Date: 20110526
  Receipt Date: 20110517
  Transmission Date: 20111010
  Serious: Yes (Hospitalization, Other)
  Sender: FDA-Public Use
  Company Number: US-ASTRAZENECA-2010SE15650

PATIENT
  Age: 59 Year
  Sex: Female
  Weight: 132.9 kg

DRUGS (6)
  1. FOLIC ACID [Concomitant]
  2. INSULIN [Concomitant]
  3. ATACAND [Suspect]
     Indication: HYPERTENSION
     Route: 048
  4. ATACAND HCT [Suspect]
     Indication: HYPERTENSION
     Dosage: 32 + 12.5 MG, DAILY
     Route: 048
  5. NEXIUM [Suspect]
     Route: 048
  6. METFORMIN HCL [Concomitant]

REACTIONS (5)
  - DIABETES MELLITUS [None]
  - THROMBOSIS [None]
  - PANCREATITIS [None]
  - ASTHMA [None]
  - TENDON INJURY [None]
